FAERS Safety Report 6494856-9 (Version None)
Quarter: 2009Q4

REPORT INFORMATION
  Report Type: 
  Country: None (occurrence: None)
  Receive Date: 20091214
  Receipt Date: 20091202
  Transmission Date: 20100525
  Serious: Yes (Other)
  Sender: FDA-Public Use
  Company Number: PHHY2009AU53451

PATIENT
  Sex: Male

DRUGS (1)
  1. VOLTAREN [Suspect]
     Indication: CONNECTIVE TISSUE DISORDER
     Dosage: 1 TABLET PER DAY
     Route: 048

REACTIONS (3)
  - CAUSTIC INJURY [None]
  - INFECTION [None]
  - URINE ABNORMALITY [None]
